FAERS Safety Report 16953255 (Version 1)
Quarter: 2019Q4

REPORT INFORMATION
  Report Type: Spontaneous
  Country: JP (occurrence: JP)
  Receive Date: 20191023
  Receipt Date: 20191023
  Transmission Date: 20200122
  Serious: Yes (Other)
  Sender: FDA-Public Use
  Company Number: JP-PFIZER INC-2019448678

PATIENT
  Age: 65 Year
  Sex: Female

DRUGS (2)
  1. CARBOPLATIN. [Suspect]
     Active Substance: CARBOPLATIN
     Indication: POSTOPERATIVE CARE
     Dosage: UNK, MONTHLY
     Dates: start: 201402, end: 201407
  2. PACLITAXEL 100MG/16.7ML HOSPIRA [Suspect]
     Active Substance: PACLITAXEL
     Indication: POSTOPERATIVE CARE
     Dosage: UNK, MONTHLY
     Dates: start: 201402, end: 201407

REACTIONS (2)
  - Metastases to peritoneum [Unknown]
  - Second primary malignancy [Unknown]

NARRATIVE: CASE EVENT DATE: 201711
